FAERS Safety Report 21347756 (Version 1)
Quarter: 2022Q3

REPORT INFORMATION
  Report Type: Report from Study
  Country: US (occurrence: US)
  Receive Date: 20220919
  Receipt Date: 20220919
  Transmission Date: 20221026
  Serious: Yes (Death)
  Sender: FDA-Public Use
  Company Number: US-HBP-2022US026106

PATIENT
  Age: 66 Year
  Sex: Female

DRUGS (3)
  1. TRUSELTIQ [Suspect]
     Active Substance: INFIGRATINIB
     Indication: Cholangiocarcinoma
     Dosage: 125 MILLIGRAM DOSE PACK, QD
     Route: 048
     Dates: start: 202204, end: 20220421
  2. TRUSELTIQ [Suspect]
     Active Substance: INFIGRATINIB
     Dosage: 100 MILLIGRAM DOSE PACK, QD
     Route: 048
     Dates: start: 202204
  3. TRUSELTIQ [Suspect]
     Active Substance: INFIGRATINIB
     Dosage: 75 MILLIGRAM, QD
     Route: 048
     Dates: end: 202209

REACTIONS (7)
  - Death [Fatal]
  - Gastrooesophageal reflux disease [Unknown]
  - Somnolence [Not Recovered/Not Resolved]
  - Condition aggravated [Not Recovered/Not Resolved]
  - Fatigue [Not Recovered/Not Resolved]
  - Blood calcium increased [Unknown]
  - Blood phosphorus increased [Unknown]

NARRATIVE: CASE EVENT DATE: 20220401
